FAERS Safety Report 14146575 (Version 1)
Quarter: 2017Q4

REPORT INFORMATION
  Report Type: Spontaneous
  Country: US (occurrence: US)
  Receive Date: 20171031
  Receipt Date: 20171031
  Transmission Date: 20180321
  Serious: No
  Sender: FDA-Public Use
  Company Number: US-009507513-1710USA006966

PATIENT
  Age: 31 Year
  Sex: Female

DRUGS (4)
  1. HYDROXYCHLOROQUINE SULFATE. [Concomitant]
     Active Substance: HYDROXYCHLOROQUINE SULFATE
     Dosage: 400 MG, DAILY (AT 6 WEEKS GESTATION)
  2. DEXAMETHASONE. [Suspect]
     Active Substance: DEXAMETHASONE
     Dosage: 8 MG, ONCE
     Route: 048
  3. HYDROXYCHLOROQUINE SULFATE. [Concomitant]
     Active Substance: HYDROXYCHLOROQUINE SULFATE
     Indication: SYSTEMIC LUPUS ERYTHEMATOSUS
     Dosage: 200 MG, DAILY (PRIOR TO PREGNANCY)
  4. GLOBULIN, IMMUNE [Concomitant]
     Active Substance: HUMAN IMMUNOGLOBULIN G
     Dosage: 400 1G/KG, ONCE

REACTIONS (1)
  - Exposure during pregnancy [Recovered/Resolved]
